FAERS Safety Report 23231239 (Version 3)
Quarter: 2023Q4

REPORT INFORMATION
  Report Type: Spontaneous
  Country: PL (occurrence: PL)
  Receive Date: 20231127
  Receipt Date: 20231214
  Transmission Date: 20240109
  Serious: Yes (Other)
  Sender: FDA-Public Use
  Company Number: PL-SAMSUNG BIOEPIS-SB-2023-31352

PATIENT
  Age: 18 Year
  Sex: Female

DRUGS (1)
  1. ETANERCEPT [Suspect]
     Active Substance: ETANERCEPT
     Indication: Psoriasis
     Dosage: UNKNOWN
     Route: 065

REACTIONS (6)
  - Takayasu^s arteritis [Recovered/Resolved]
  - Colitis ulcerative [Unknown]
  - Cardiac failure [Recovered/Resolved]
  - Hypertension [Recovered/Resolved]
  - COVID-19 [Unknown]
  - Renal ischaemia [Unknown]

NARRATIVE: CASE EVENT DATE: 20200101
